FAERS Safety Report 8063923-0 (Version None)
Quarter: 2012Q1

REPORT INFORMATION
  Report Type: 
  Country: None (occurrence: None)
  Receive Date: 20120123
  Receipt Date: 20120117
  Transmission Date: 20120608
  Serious: Yes (Hospitalization, Congenital Anomaly, Other)
  Sender: FDA-Public Use
  Company Number: US-PFIZER INC-2011105663

PATIENT
  Sex: Female
  Weight: 4 kg

DRUGS (5)
  1. MULTI-VITAMINS [Concomitant]
     Dosage: UNK
     Route: 064
     Dates: start: 19981105
  2. TYLENOL W/ CODEINE [Concomitant]
     Indication: MIGRAINE
     Dosage: UNK
     Route: 064
     Dates: start: 19981105
  3. ROBITUSSIN AC [Concomitant]
     Indication: COUGH
     Dosage: UNK
     Route: 064
     Dates: start: 19990204
  4. ZOLOFT [Suspect]
     Dosage: 100 MG, HALF TABLET DAILY
     Route: 064
     Dates: start: 19981008
  5. ZOLOFT [Suspect]
     Indication: DEPRESSION
     Dosage: 50 MG, 1X/DAY
     Route: 064
     Dates: start: 19980908

REACTIONS (7)
  - FOETAL EXPOSURE DURING PREGNANCY [None]
  - THYROXINE ABNORMAL [None]
  - RESPIRATORY DISTRESS [None]
  - NEONATAL PNEUMONIA [None]
  - LUNG DISORDER [None]
  - PNEUMOTHORAX [None]
  - RASH [None]
